FAERS Safety Report 5154204-3 (Version None)
Quarter: 2006Q4

REPORT INFORMATION
  Report Type: 
  Country: None (occurrence: None)
  Receive Date: 20061114
  Receipt Date: 20061027
  Transmission Date: 20070319
  Serious: Yes (Death)
  Sender: FDA-Public Use
  Company Number: 15064

PATIENT
  Age: 61 Year
  Sex: Female

DRUGS (5)
  1. METHYLENE BLUE [Suspect]
     Indication: PARATHYROID GLAND OPERATION
     Dosage: 12.6 ML IV
     Route: 042
     Dates: start: 20060921, end: 20060921
  2. ANASTROZOLE [Concomitant]
  3. CLOMIPRAMINE HCL [Concomitant]
  4. DICLOFENAC SODIUM [Concomitant]
  5. PROPRANOLOL [Concomitant]

REACTIONS (3)
  - GENERAL PHYSICAL HEALTH DETERIORATION [None]
  - LOSS OF CONSCIOUSNESS [None]
  - POST PROCEDURAL COMPLICATION [None]
